FAERS Safety Report 9286213 (Version 6)
Quarter: 2014Q4

REPORT INFORMATION
  Report Type: Spontaneous
  Country: US (occurrence: US)
  Receive Date: 20130513
  Receipt Date: 20141203
  Transmission Date: 20150529
  Serious: Yes (Hospitalization, Other)
  Sender: FDA-Public Use
  Company Number: US-GLAXOSMITHKLINE-A1023122A

PATIENT
  Age: 39 Year
  Sex: Female
  Weight: 63 kg

DRUGS (5)
  1. COUMADIN [Concomitant]
     Active Substance: WARFARIN SODIUM
  2. FLOLAN [Suspect]
     Active Substance: EPOPROSTENOL SODIUM
     Dates: start: 20090606
  3. FLOLAN [Suspect]
     Active Substance: EPOPROSTENOL SODIUM
     Dosage: 26 NG/KG/MIN, CONCENTRATION 30,000 NG/ML, PUMP RATE 75 ML/DAY, VIAL STRENGTH 1.5 MG
     Dates: start: 20090606
  4. FLOLAN [Suspect]
     Active Substance: EPOPROSTENOL SODIUM
     Indication: PULMONARY ARTERIAL HYPERTENSION
     Dosage: 25 NG/KG/MIN CONTINUOUSLY (CONCENTRATION 30,000 NG/ML; 1.5 MG VIAL STRENGTH)26 NG/KG/MIN, CONC:[...]
     Route: 042
     Dates: start: 20090606
  5. REVATIO [Concomitant]
     Active Substance: SILDENAFIL CITRATE

REACTIONS (4)
  - Hospitalisation [Unknown]
  - Device related infection [Recovered/Resolved]
  - Lung transplant [Unknown]
  - Clostridium difficile infection [Recovered/Resolved]

NARRATIVE: CASE EVENT DATE: 20130425
